FAERS Safety Report 20249363 (Version 1)
Quarter: 2021Q4

REPORT INFORMATION
  Report Type: Spontaneous
  Country: US (occurrence: None)
  Receive Date: 20211229
  Receipt Date: 20211229
  Transmission Date: 20220304
  Serious: Yes (Life-Threatening, Hospitalization, Disabling)
  Sender: FDA-Public Use
  Company Number: None

PATIENT
  Age: 61 Year
  Sex: Male
  Weight: 57.89 kg

DRUGS (4)
  1. ATORVASTATIN [Suspect]
     Active Substance: ATORVASTATIN
     Indication: Hyperlipidaemia
     Dosage: FREQUENCY : AT BEDTIME;?
     Route: 048
     Dates: end: 20210824
  2. CYCLOBENZAPRINE [Concomitant]
     Active Substance: CYCLOBENZAPRINE
  3. FAMOTIDINE [Concomitant]
     Active Substance: FAMOTIDINE
  4. COVID VACCINE (unknown product) in April [Concomitant]

REACTIONS (6)
  - Dysphagia [None]
  - Muscular weakness [None]
  - Weight decreased [None]
  - Hepatic steatosis [None]
  - Blood creatine phosphokinase increased [None]
  - Necrotising myositis [None]

NARRATIVE: CASE EVENT DATE: 20210824
